FAERS Safety Report 15233307 (Version 1)
Quarter: 2018Q3

REPORT INFORMATION
  Report Type: Spontaneous
  Country: US (occurrence: US)
  Receive Date: 20180802
  Receipt Date: 20180802
  Transmission Date: 20181010
  Serious: No
  Sender: FDA-Public Use
  Company Number: US-PFIZER INC-2018139671

PATIENT
  Age: 13 Year
  Sex: Male

DRUGS (2)
  1. GENOTROPIN [Suspect]
     Active Substance: SOMATROPIN
     Dosage: 1.6 MG, 6 DAYS A WEEK
     Dates: start: 20180213
  2. GENOTROPIN [Suspect]
     Active Substance: SOMATROPIN
     Dosage: 1.8 MG, 6 DAYS A WEEK
     Dates: start: 20180215

REACTIONS (3)
  - Blood follicle stimulating hormone decreased [Unknown]
  - Red blood cell count decreased [Unknown]
  - Vitamin D decreased [Unknown]
